FAERS Safety Report 7953770-X (Version None)
Quarter: 2011Q4

REPORT INFORMATION
  Report Type: 
  Country: None (occurrence: None)
  Receive Date: 20111202
  Receipt Date: 20111123
  Transmission Date: 20120403
  Serious: No
  Sender: FDA-Public Use
  Company Number: US-PFIZER INC-2011143578

PATIENT
  Age: 47 Year
  Sex: Female

DRUGS (4)
  1. DISOPYRAMIDE PHOSPHATE [Suspect]
     Indication: CARDIAC DISORDER
  2. TOPROL-XL [Concomitant]
  3. METOPROLOL [Concomitant]
  4. LORAZEPAM [Concomitant]
     Dosage: UNK

REACTIONS (2)
  - CONSTIPATION [None]
  - DYSURIA [None]
